FAERS Safety Report 5294472-0 (Version None)
Quarter: 2007Q2

REPORT INFORMATION
  Report Type: 
  Country: None (occurrence: None)
  Receive Date: 20070406
  Receipt Date: 20070307
  Transmission Date: 20071010
  Serious: No
  Sender: FDA-Public Use
  Company Number: 20073660

PATIENT
  Age: 9 Year
  Sex: Male

DRUGS (2)
  1. LIORESAL [Suspect]
     Indication: MUSCLE SPASTICITY
     Dosage: UNKNOWN MCG/DAY, INTRATHECAL
     Route: 037
     Dates: start: 20060701
  2. LIORESAL [Suspect]
     Indication: QUADRIPARESIS
     Dosage: UNKNOWN MCG/DAY, INTRATHECAL
     Route: 037
     Dates: start: 20060701

REACTIONS (3)
  - MUSCLE TIGHTNESS [None]
  - MUSCULOSKELETAL STIFFNESS [None]
  - SCAR [None]
